FAERS Safety Report 16969721 (Version 1)
Quarter: 2019Q4

REPORT INFORMATION
  Report Type: Spontaneous
  Country: CA (occurrence: CA)
  Receive Date: 20191029
  Receipt Date: 20191029
  Transmission Date: 20200122
  Serious: Yes (Other)
  Sender: FDA-Public Use
  Company Number: CA-PFIZER INC-2019464636

PATIENT
  Age: 64 Year
  Sex: Female

DRUGS (1)
  1. CHAMPIX [Suspect]
     Active Substance: VARENICLINE TARTRATE
     Indication: TOBACCO ABUSE
     Dosage: 0.5 MG, 1X/DAY
     Route: 048

REACTIONS (6)
  - Suicidal ideation [Recovered/Resolved]
  - Paradoxical drug reaction [Recovered/Resolved]
  - Tobacco abuse [Recovered/Resolved]
  - Anxiety [Recovered/Resolved]
  - Tobacco user [Recovered/Resolved]
  - Mental disorder [Recovered/Resolved]
